FAERS Safety Report 12757723 (Version 1)
Quarter: 2016Q3

REPORT INFORMATION
  Report Type: Report from Study
  Country: BR (occurrence: BR)
  Receive Date: 20160919
  Receipt Date: 20160919
  Transmission Date: 20161109
  Serious: Yes (Life-Threatening)
  Sender: FDA-Public Use
  Company Number: PHHY2016BR072970

PATIENT
  Sex: Female
  Weight: 77 kg

DRUGS (3)
  1. AROMASIN [Concomitant]
     Active Substance: EXEMESTANE
     Indication: BREAST CANCER METASTATIC
     Dosage: 25 MG/KG, QD
     Route: 048
  2. ZOMETA [Suspect]
     Active Substance: ZOLEDRONIC ACID
     Indication: METASTASES TO BONE
     Dosage: EVERY 28 DAYS
     Route: 065
  3. AFINITOR [Suspect]
     Active Substance: EVEROLIMUS
     Indication: BREAST CANCER METASTATIC
     Dosage: 10 MG, QD
     Route: 048
     Dates: start: 201603

REACTIONS (22)
  - Feeling abnormal [Unknown]
  - Urticaria [Unknown]
  - Skin exfoliation [Unknown]
  - Hyperaesthesia [Unknown]
  - Skin disorder [Not Recovered/Not Resolved]
  - Malaise [Unknown]
  - Fatigue [Unknown]
  - Flatulence [Unknown]
  - Skin hypertrophy [Unknown]
  - Dry skin [Not Recovered/Not Resolved]
  - Stomatitis [Unknown]
  - Arthralgia [Unknown]
  - Pruritus [Unknown]
  - Decreased appetite [Not Recovered/Not Resolved]
  - Diarrhoea [Recovering/Resolving]
  - Lip dry [Unknown]
  - Confusional state [Not Recovered/Not Resolved]
  - Weight decreased [Not Recovered/Not Resolved]
  - Functional gastrointestinal disorder [Unknown]
  - Skin atrophy [Unknown]
  - Vision blurred [Not Recovered/Not Resolved]
  - Peripheral swelling [Not Recovered/Not Resolved]
